FAERS Safety Report 17970215 (Version 1)
Quarter: 2020Q3

REPORT INFORMATION
  Report Type: Report from Study
  Country: None (occurrence: US)
  Receive Date: 20200702
  Receipt Date: 20200702
  Transmission Date: 20201103
  Serious: Yes (Other)
  Sender: FDA-Public Use
  Company Number: US-ABBVIE-20K-163-3460900-00

PATIENT
  Sex: Male

DRUGS (1)
  1. HUMIRA [Suspect]
     Active Substance: ADALIMUMAB
     Indication: RHEUMATOID ARTHRITIS
     Dosage: CERATE FREE
     Route: 058

REACTIONS (4)
  - Spinal operation [Unknown]
  - Musculoskeletal stiffness [Recovering/Resolving]
  - Cheilitis [Not Recovered/Not Resolved]
  - Cardiac pacemaker insertion [Unknown]
